FAERS Safety Report 10616331 (Version 1)
Quarter: 2014Q4

REPORT INFORMATION
  Report Type: Spontaneous
  Country: SE (occurrence: SE)
  Receive Date: 20141201
  Receipt Date: 20141201
  Transmission Date: 20150529
  Serious: Yes (Life-Threatening, Hospitalization)
  Sender: FDA-Public Use
  Company Number: SE-PFIZER INC-2014325672

PATIENT
  Age: 75 Year
  Sex: Male

DRUGS (9)
  1. DESONIX [Concomitant]
     Dosage: UNK
  2. LACTULOSE. [Concomitant]
     Active Substance: LACTULOSE
     Dosage: UNK
  3. ZOPICLONE [Suspect]
     Active Substance: ZOPICLONE
     Dosage: 15 MG, SINGLE
     Route: 048
     Dates: start: 20131015, end: 20131015
  4. LYRICA [Concomitant]
     Active Substance: PREGABALIN
     Dosage: UNK
  5. DOLCONTIN [Suspect]
     Active Substance: MORPHINE
     Dosage: 110 MG, SINGLE
     Route: 048
     Dates: start: 20131015, end: 20131015
  6. SOBRIL [Suspect]
     Active Substance: OXAZEPAM
     Dosage: 60 MG, SINGLE
     Dates: start: 20131015, end: 20131015
  7. HEMINEVRIN [Suspect]
     Active Substance: CLOMETHIAZOLE
     Dosage: 1200 MG, SINGLE
     Route: 048
     Dates: start: 20131015, end: 20131015
  8. ALVEDON [Suspect]
     Active Substance: ACETAMINOPHEN
     Dosage: 5320 MG, SINGLE
     Route: 048
     Dates: start: 20131015, end: 20131015
  9. MIRTAZAPINE. [Suspect]
     Active Substance: MIRTAZAPINE
     Dosage: 60 MG, SINGLE
     Route: 048
     Dates: start: 20131015, end: 20131015

REACTIONS (2)
  - Toxicity to various agents [Recovered/Resolved]
  - Suicide attempt [Recovered/Resolved]

NARRATIVE: CASE EVENT DATE: 20131015
